FAERS Safety Report 25660817 (Version 1)
Quarter: 2025Q3

REPORT INFORMATION
  Report Type: Spontaneous
  Country: EU (occurrence: EU)
  Receive Date: 20250808
  Receipt Date: 20250808
  Transmission Date: 20251020
  Serious: Yes (Hospitalization)
  Sender: MYLAN
  Company Number: None

PATIENT
  Age: 87 Year
  Sex: Male

DRUGS (20)
  1. CANDESARTAN [Suspect]
     Active Substance: CANDESARTAN
     Indication: Hypertension
     Dosage: 4 MILLIGRAM, QD (0.5 WITH BREAKFAST)
     Dates: start: 20210914
  2. CANDESARTAN [Suspect]
     Active Substance: CANDESARTAN
     Dosage: 4 MILLIGRAM, QD (0.5 WITH BREAKFAST)
     Route: 048
     Dates: start: 20210914
  3. CANDESARTAN [Suspect]
     Active Substance: CANDESARTAN
     Dosage: 4 MILLIGRAM, QD (0.5 WITH BREAKFAST)
     Route: 048
     Dates: start: 20210914
  4. CANDESARTAN [Suspect]
     Active Substance: CANDESARTAN
     Dosage: 4 MILLIGRAM, QD (0.5 WITH BREAKFAST)
     Dates: start: 20210914
  5. MIRTAZAPINE [Suspect]
     Active Substance: MIRTAZAPINE
     Indication: Adjustment disorder with depressed mood
     Dosage: 25 MILLIGRAM, QD (1 WITH DINNER, 30 TABLETS)
     Dates: start: 20250626, end: 20250630
  6. MIRTAZAPINE [Suspect]
     Active Substance: MIRTAZAPINE
     Dosage: 25 MILLIGRAM, QD (1 WITH DINNER, 30 TABLETS)
     Route: 048
     Dates: start: 20250626, end: 20250630
  7. MIRTAZAPINE [Suspect]
     Active Substance: MIRTAZAPINE
     Dosage: 25 MILLIGRAM, QD (1 WITH DINNER, 30 TABLETS)
     Route: 048
     Dates: start: 20250626, end: 20250630
  8. MIRTAZAPINE [Suspect]
     Active Substance: MIRTAZAPINE
     Dosage: 25 MILLIGRAM, QD (1 WITH DINNER, 30 TABLETS)
     Dates: start: 20250626, end: 20250630
  9. QUETIAPINE [Suspect]
     Active Substance: QUETIAPINE
     Indication: Agitation
     Dates: start: 20250627, end: 20250627
  10. QUETIAPINE [Suspect]
     Active Substance: QUETIAPINE
     Route: 048
     Dates: start: 20250627, end: 20250627
  11. QUETIAPINE [Suspect]
     Active Substance: QUETIAPINE
     Route: 048
     Dates: start: 20250627, end: 20250627
  12. QUETIAPINE [Suspect]
     Active Substance: QUETIAPINE
     Dates: start: 20250627, end: 20250627
  13. ABILIFY [Suspect]
     Active Substance: ARIPIPRAZOLE
     Indication: Adjustment disorder with depressed mood
     Dosage: 5 MILLIGRAM, QD ( 28 TABLETS,1 EVERY 24 HOURS)
     Dates: start: 20250626
  14. ABILIFY [Suspect]
     Active Substance: ARIPIPRAZOLE
     Dosage: 5 MILLIGRAM, QD ( 28 TABLETS,1 EVERY 24 HOURS)
     Route: 048
     Dates: start: 20250626
  15. ABILIFY [Suspect]
     Active Substance: ARIPIPRAZOLE
     Dosage: 5 MILLIGRAM, QD ( 28 TABLETS,1 EVERY 24 HOURS)
     Route: 048
     Dates: start: 20250626
  16. ABILIFY [Suspect]
     Active Substance: ARIPIPRAZOLE
     Dosage: 5 MILLIGRAM, QD ( 28 TABLETS,1 EVERY 24 HOURS)
     Dates: start: 20250626
  17. PAROXETINE [Suspect]
     Active Substance: PAROXETINE
     Indication: Adjustment disorder with depressed mood
     Dosage: 30 MILLIGRAM, QD (1 WITH BREAKFAST,  28 TABLETS)
     Dates: start: 20210914
  18. PAROXETINE [Suspect]
     Active Substance: PAROXETINE
     Dosage: 30 MILLIGRAM, QD (1 WITH BREAKFAST,  28 TABLETS)
     Route: 048
     Dates: start: 20210914
  19. PAROXETINE [Suspect]
     Active Substance: PAROXETINE
     Dosage: 30 MILLIGRAM, QD (1 WITH BREAKFAST,  28 TABLETS)
     Route: 048
     Dates: start: 20210914
  20. PAROXETINE [Suspect]
     Active Substance: PAROXETINE
     Dosage: 30 MILLIGRAM, QD (1 WITH BREAKFAST,  28 TABLETS)
     Dates: start: 20210914

REACTIONS (2)
  - Inappropriate antidiuretic hormone secretion [Recovered/Resolved]
  - Seizure [Recovered/Resolved]

NARRATIVE: CASE EVENT DATE: 20250628
